FAERS Safety Report 19813856 (Version 2)
Quarter: 2022Q2

REPORT INFORMATION
  Report Type: Spontaneous
  Country: US (occurrence: US)
  Receive Date: 20210909
  Receipt Date: 20220610
  Transmission Date: 20220720
  Serious: Yes (Other)
  Sender: FDA-Public Use
  Company Number: US-ALLERGAN-2117176US

PATIENT
  Sex: Female

DRUGS (1)
  1. BYSTOLIC [Suspect]
     Active Substance: NEBIVOLOL HYDROCHLORIDE
     Indication: Product used for unknown indication
     Dosage: 10 MG, QD
     Route: 048
     Dates: start: 202103

REACTIONS (17)
  - Macular degeneration [Unknown]
  - Serum ferritin increased [Unknown]
  - Blood alkaline phosphatase increased [Unknown]
  - Eye discharge [Unknown]
  - Heart rate increased [Not Recovered/Not Resolved]
  - Abdominal discomfort [Unknown]
  - Fall [Recovered/Resolved]
  - Drug hypersensitivity [Unknown]
  - Visual impairment [Unknown]
  - Unevaluable event [Unknown]
  - Dizziness [Unknown]
  - Dyspnoea [Unknown]
  - Hypertension [Not Recovered/Not Resolved]
  - Suspected counterfeit product [Unknown]
  - Drug ineffective [Unknown]
  - Product taste abnormal [Unknown]
  - Product odour abnormal [Unknown]
